FAERS Safety Report 21103885 (Version 1)
Quarter: 2022Q3

REPORT INFORMATION
  Report Type: Spontaneous
  Country: CN (occurrence: CN)
  Receive Date: 20220720
  Receipt Date: 20220720
  Transmission Date: 20221027
  Serious: Yes (Other)
  Sender: FDA-Public Use
  Company Number: None

PATIENT
  Age: 9 Year
  Sex: Female
  Weight: 25 kg

DRUGS (4)
  1. CYCLOPHOSPHAMIDE [Suspect]
     Active Substance: CYCLOPHOSPHAMIDE
     Indication: Non-Hodgkin^s lymphoma
     Dosage: 0.98 G, QD, (DOSAGE FORM: INJECTION), CYCLOPHOSPHAMIDE FOR INJECTION 0.98G + NS100ML
     Route: 041
     Dates: start: 20220629, end: 20220629
  2. SODIUM CHLORIDE [Suspect]
     Active Substance: SODIUM CHLORIDE
     Indication: Medication dilution
     Dosage: 100 ML, QD, CYCLOPHOSPHAMIDE FOR INJECTION 0.98G + NS100ML
     Route: 041
     Dates: start: 20220629, end: 20220629
  3. SODIUM CHLORIDE [Suspect]
     Active Substance: SODIUM CHLORIDE
     Dosage: 1 ML, QD, CYTARABINE HYDROCHLORIDE FOR INJECTION 74MG + NS1ML
     Route: 058
     Dates: start: 20220629, end: 20220704
  4. CYTARABINE HYDROCHLORIDE [Suspect]
     Active Substance: CYTARABINE HYDROCHLORIDE
     Indication: Non-Hodgkin^s lymphoma
     Dosage: 74 MG, QD, CYTARABINE HYDROCHLORIDE FOR INJECTION 74MG + NS1ML
     Route: 058
     Dates: start: 20220629, end: 20220704

REACTIONS (1)
  - Myelosuppression [Recovering/Resolving]

NARRATIVE: CASE EVENT DATE: 20220705
